FAERS Safety Report 5716050-9 (Version None)
Quarter: 2008Q2

REPORT INFORMATION
  Report Type: 
  Country: None (occurrence: None)
  Receive Date: 20080424
  Receipt Date: 20080416
  Transmission Date: 20081010
  Serious: Yes (Hospitalization)
  Sender: FDA-Public Use
  Company Number: US-PURDUE-USA_2008_0032435

PATIENT
  Age: 58 Year
  Sex: Male
  Weight: 77 kg

DRUGS (6)
  1. MS CONTIN [Suspect]
     Indication: PAIN
     Dosage: 90 MG, BID
     Route: 048
  2. MORPHINE SULFATE [Suspect]
     Indication: PAIN
     Dosage: 30 MG, BID
     Route: 048
  3. PAZOPANIB [Suspect]
     Indication: DRUG LEVEL
     Dosage: 5 MG, DAILY
     Route: 042
     Dates: start: 20080207
  4. PERCOCET [Suspect]
     Indication: PAIN
     Dosage: UNK, PRN
     Route: 048
  5. LORAZEPAM [Suspect]
     Indication: ANXIETY
     Dosage: 2 MG, DAILY
     Route: 048
  6. PAZOPANIB [Suspect]
     Dosage: 800 MG, UNK
     Route: 048
     Dates: start: 20080209, end: 20080218

REACTIONS (4)
  - CONFUSIONAL STATE [None]
  - HALLUCINATION [None]
  - MENTAL STATUS CHANGES [None]
  - PAIN [None]
